FAERS Safety Report 11077279 (Version 2)
Quarter: 2015Q2

REPORT INFORMATION
  Report Type: Spontaneous
  Country: US (occurrence: FR)
  Receive Date: 20150429
  Receipt Date: 20150430
  Transmission Date: 20150821
  Serious: Yes (Hospitalization)
  Sender: FDA-Public Use
  Company Number: PHHY2015FR049312

PATIENT
  Sex: Female

DRUGS (16)
  1. ZYMAD [Suspect]
     Active Substance: CHOLECALCIFEROL
     Indication: PRODUCT USED FOR UNKNOWN INDICATION
     Dosage: 10 GTT, QD
     Route: 048
  2. LAMICTAL [Suspect]
     Active Substance: LAMOTRIGINE
     Dosage: 200 MG, BID (IN THE MORNING AND IN THE EVENING)
     Route: 048
  3. CIRCADIN [Suspect]
     Active Substance: MELATONIN
     Indication: PRODUCT USED FOR UNKNOWN INDICATION
     Dosage: 1 DF, QD (IN THE EVENING)
     Route: 048
  4. MINRIN [Suspect]
     Active Substance: DESMOPRESSIN ACETATE
     Dosage: DOSE REDUCED
     Route: 048
  5. LAMICTAL [Suspect]
     Active Substance: LAMOTRIGINE
     Indication: EPILEPSY
     Dosage: 100 MG, BID (IN THE MORNING AND IN THE EVENING)
     Route: 048
     Dates: start: 2012
  6. SABRIL [Suspect]
     Active Substance: VIGABATRIN
     Dosage: 6 DF, QD
     Route: 048
  7. DIFFU K [Suspect]
     Active Substance: POTASSIUM CHLORIDE
     Indication: PRODUCT USED FOR UNKNOWN INDICATION
     Dosage: 4 DF, QD (DEFU K 600)
     Route: 048
  8. MINRIN [Suspect]
     Active Substance: DESMOPRESSIN ACETATE
     Dosage: DOSE REINCREASED
     Route: 048
  9. NORDITROPINE [Suspect]
     Active Substance: SOMATROPIN
     Indication: PRODUCT USED FOR UNKNOWN INDICATION
     Dosage: 1 DF, QD
     Route: 058
  10. HYDROCORTISONE. [Suspect]
     Active Substance: HYDROCORTISONE
     Indication: PRODUCT USED FOR UNKNOWN INDICATION
     Dosage: 27.5 MG, QD (10 MG IN THE MORNING,10 INTHE EVENING AND 7.5 IN THE NIGHT)
     Route: 048
  11. MINRIN [Suspect]
     Active Substance: DESMOPRESSIN ACETATE
     Indication: PRODUCT USED FOR UNKNOWN INDICATION
     Dosage: 450 UG, QD (180 UG IN THE MORNING 90 UG IN THE AFTERNOON AND 180 INTHE EVENING)
     Route: 048
  12. SABRIL [Suspect]
     Active Substance: VIGABATRIN
     Indication: EPILEPSY
     Dosage: 3 DF, QD (AT NOON)
     Route: 048
     Dates: start: 2013
  13. QUESTRAN [Suspect]
     Active Substance: CHOLESTYRAMINE
     Indication: PRODUCT USED FOR UNKNOWN INDICATION
     Dosage: 1 DF, QD (IN THE MORNING)
     Route: 048
     Dates: start: 201402
  14. RITALINE [Suspect]
     Active Substance: METHYLPHENIDATE HYDROCHLORIDE
     Indication: PRODUCT USED FOR UNKNOWN INDICATION
     Dosage: 40 MG, QD (30 MG IN THE MORNING AND 10 MG IN THE AFTERNOON)
     Route: 048
  15. METFORMIN [Suspect]
     Active Substance: METFORMIN HYDROCHLORIDE
     Indication: PRODUCT USED FOR UNKNOWN INDICATION
     Dosage: 750 MG, QD (500 MG IN THE MORNING AND 250 MG IN THE NIGHT)
     Route: 048
  16. LEVOTHYROXINE SODIUM. [Suspect]
     Active Substance: LEVOTHYROXINE SODIUM
     Indication: PRODUCT USED FOR UNKNOWN INDICATION
     Dosage: 17 GTT, QD (IN THE MORNING)
     Route: 048

REACTIONS (2)
  - Hyponatraemia [Recovered/Resolved]
  - Epilepsy [Recovered/Resolved]
